FAERS Safety Report 5279810-7 (Version None)
Quarter: 2007Q1

REPORT INFORMATION
  Report Type: 
  Country: None (occurrence: None)
  Receive Date: 20070327
  Receipt Date: 20070327
  Transmission Date: 20070707
  Serious: Yes (Hospitalization)
  Sender: FDA-Public Use
  Company Number: None

PATIENT
  Sex: Male
  Weight: 96.9 kg

DRUGS (5)
  1. ASPIRIN [Suspect]
     Indication: CORONARY ARTERY DISEASE
     Dosage: 81 MG DAILY PO
     Route: 048
     Dates: start: 20010301
  2. ASPIRIN [Suspect]
     Indication: CORONARY ARTERY DISEASE
     Dosage: 81 MG DAILY PO
     Route: 048
     Dates: start: 20060301
  3. ATENOLOL [Concomitant]
  4. FELODIPINE [Concomitant]
  5. LISINOPRIL [Concomitant]

REACTIONS (3)
  - ARTERIOVENOUS MALFORMATION [None]
  - GASTRITIS EROSIVE [None]
  - SMALL INTESTINAL HAEMORRHAGE [None]
